FAERS Safety Report 9270565 (Version 1)
Quarter: 2013Q2

REPORT INFORMATION
  Report Type: Spontaneous
  Country: US (occurrence: US)
  Receive Date: 20130503
  Receipt Date: 20130503
  Transmission Date: 20140414
  Serious: Yes (Life-Threatening)
  Sender: FDA-Public Use
  Company Number: US-BAYER-2013-051578

PATIENT
  Age: 35 Year
  Sex: Female

DRUGS (8)
  1. DIPHENHYDRAMINE HYDROCHLORIDE [Suspect]
     Indication: DRUG HYPERSENSITIVITY
  2. HYDROMORPHONE [Suspect]
     Indication: PAIN
  3. SEVOFLURANE [Concomitant]
     Indication: GENERAL ANAESTHESIA
  4. PHENYLEPHRINE [Concomitant]
     Indication: ADRENERGIC SYNDROME
     Dosage: 20 - 40 MCG/MIN
  5. SUFENTANIL [Concomitant]
     Dosage: 0.01 MCG/KG/MIN
  6. ALBUMIN [Concomitant]
     Dosage: 750 ML, ONCE
     Route: 042
  7. KETOROLAC [Concomitant]
     Indication: ANALGESIC THERAPY
  8. DEXMEDETOMIDINE [Concomitant]
     Indication: ANALGESIC THERAPY

REACTIONS (2)
  - Postoperative ileus [None]
  - Abdominal compartment syndrome [Recovering/Resolving]
